FAERS Safety Report 13128400 (Version 2)
Quarter: 2017Q1

REPORT INFORMATION
  Report Type: Spontaneous
  Country: US (occurrence: US)
  Receive Date: 20170118
  Receipt Date: 20170126
  Transmission Date: 20170428
  Serious: Yes (Hospitalization)
  Sender: FDA-Public Use
  Company Number: US-NEXGEN PHARMA, INC.-1062137

PATIENT
  Age: 8 Year
  Sex: Male

DRUGS (1)
  1. CHENODIOL. [Suspect]
     Active Substance: CHENODIOL
     Indication: XANTHOMATOSIS
     Route: 048
     Dates: start: 20161020

REACTIONS (4)
  - Chance fracture [Recovered/Resolved]
  - Cataract operation [None]
  - Altered visual depth perception [None]
  - Femur fracture [None]

NARRATIVE: CASE EVENT DATE: 20161208
